FAERS Safety Report 12119974 (Version 1)
Quarter: 2016Q1

REPORT INFORMATION
  Report Type: Report from Study
  Country: ZA (occurrence: ZA)
  Receive Date: 20160226
  Receipt Date: 20160226
  Transmission Date: 20160526
  Serious: Yes (Death, Other)
  Sender: FDA-Public Use
  Company Number: ZA-AMGEN-ZAFSL2016022560

PATIENT
  Age: 67 Year
  Sex: Male

DRUGS (1)
  1. ARANESP [Suspect]
     Active Substance: DARBEPOETIN ALFA
     Indication: CHRONIC KIDNEY DISEASE
     Dosage: 150 MUG, Q2WK
     Route: 058
     Dates: start: 201410

REACTIONS (2)
  - Haemoglobin abnormal [Unknown]
  - Death [Fatal]

NARRATIVE: CASE EVENT DATE: 20160129
